FAERS Safety Report 6672149-4 (Version None)
Quarter: 2010Q2

REPORT INFORMATION
  Report Type: 
  Country: None (occurrence: None)
  Receive Date: 20100407
  Receipt Date: 20100407
  Transmission Date: 20101027
  Serious: No
  Sender: FDA-Public Use
  Company Number: None

PATIENT
  Age: 33 Year
  Sex: Female
  Weight: 77.1115 kg

DRUGS (1)
  1. PYRITHIONE ZINC 1% ZINC [Suspect]
     Indication: ACCIDENTAL EXPOSURE
     Dosage: SMALL AMOUNT ON HEAD 1X
     Dates: start: 20100406, end: 20100406

REACTIONS (2)
  - BURNING SENSATION [None]
  - SKIN IRRITATION [None]
